FAERS Safety Report 4633687-9 (Version None)
Quarter: 2005Q1

REPORT INFORMATION
  Report Type: 
  Country: None (occurrence: None)
  Receive Date: 20050325
  Receipt Date: 20041227
  Transmission Date: 20050727
  Serious: No
  Sender: FDA-Public Use
  Company Number: USA041286914

PATIENT
  Age: 87 Year
  Sex: Female
  Weight: 55 kg

DRUGS (1)
  1. FORTEO [Suspect]
     Indication: HIP FRACTURE
     Dosage: 20 UG/1 IN THE EVENING
     Dates: start: 20040801

REACTIONS (4)
  - ACCIDENTAL OVERDOSE [None]
  - COUGH [None]
  - FEELING ABNORMAL [None]
  - NASOPHARYNGITIS [None]
